FAERS Safety Report 21131156 (Version 2)
Quarter: 2022Q3

REPORT INFORMATION
  Report Type: Other
  Country: US (occurrence: None)
  Receive Date: 20220726
  Receipt Date: 20220808
  Transmission Date: 20221027
  Serious: Yes (Death)
  Sender: FDA-Public Use
  Company Number: US-ROCHE-3147354

PATIENT
  Age: 80 Year
  Sex: Male

DRUGS (14)
  1. GAVRETO [Suspect]
     Active Substance: PRALSETINIB
     Indication: Lung neoplasm malignant
     Dosage: TAKE 4 CAPSULE(S) BY MOUTH ONCE DAILY?QUANTITY- ONE HUNDRED AND TWENTY CAPSULES
     Route: 048
     Dates: start: 20220702
  2. ASPIRIN [Concomitant]
     Active Substance: ASPIRIN
     Dosage: ONE DAILY
     Dates: start: 20220609
  3. AMLODIPINE [Concomitant]
     Active Substance: AMLODIPINE BESYLATE
     Dosage: ONE DAILY
     Dates: start: 20220609
  4. DILAUDID [Concomitant]
     Active Substance: HYDROMORPHONE HYDROCHLORIDE
     Dosage: QUANTITY 30 TABLETS?1 P.O.Q 6 HOURS (QID)
     Dates: start: 20220620, end: 20220621
  5. DILAUDID [Concomitant]
     Active Substance: HYDROMORPHONE HYDROCHLORIDE
     Dosage: QUANTITY 30 TABLETS?1 P O Q 4 HOURLY
     Dates: start: 20220620
  6. DILAUDID [Concomitant]
     Active Substance: HYDROMORPHONE HYDROCHLORIDE
     Dosage: QUANTITY 90 TABLETS?TAKE 1 TABLET BY MOUTH EVERY 2-4HOURS AS NEEDED FOR PAIN.
     Dates: start: 20220621
  7. FARXIGA [Concomitant]
     Active Substance: DAPAGLIFLOZIN PROPANEDIOL
     Dates: start: 20220609
  8. GLIPIZIDE [Concomitant]
     Active Substance: GLIPIZIDE
     Dosage: ONE TABLET TWICE DAILY
     Dates: start: 20220609
  9. JARDIANCE [Concomitant]
     Active Substance: EMPAGLIFLOZIN
     Dates: start: 20220609
  10. LISINOPRIL [Concomitant]
     Active Substance: LISINOPRIL
     Dosage: ONE TABLET TWICE DAILY
     Dates: start: 20220609
  11. METFORMIN [Concomitant]
     Active Substance: METFORMIN HYDROCHLORIDE
     Dosage: ONE TABLET TWICE DAILY
     Dates: start: 20220609
  12. OMEPRAZOLE [Concomitant]
     Active Substance: OMEPRAZOLE
     Dosage: ONE DAILY
     Dates: start: 20220609
  13. PROPRANOLOL [Concomitant]
     Active Substance: PROPRANOLOL HYDROCHLORIDE
     Dosage: ONE DAILY
     Dates: start: 20220709
  14. VITAMIN C [Concomitant]
     Active Substance: ASCORBIC ACID
     Dosage: ONE DAILY
     Dates: start: 20220609

REACTIONS (1)
  - Death [Fatal]

NARRATIVE: CASE EVENT DATE: 20220724
